FAERS Safety Report 6991708-2 (Version None)
Quarter: 2010Q3

REPORT INFORMATION
  Report Type: 
  Country: None (occurrence: None)
  Receive Date: 20100917
  Receipt Date: 20100914
  Transmission Date: 20110219
  Serious: Yes (Death)
  Sender: FDA-Public Use
  Company Number: PHHO2010ZA13340

PATIENT
  Sex: Female
  Weight: 79 kg

DRUGS (9)
  1. BLINDED ALISKIREN ALI+TAB+CF [Suspect]
     Dosage: NO TREATMENT
     Route: 048
  2. ENALAPRIL MALEATE [Suspect]
     Dosage: NO TREATMENT
     Route: 048
  3. BLINDED NO TREATMENT RECEIVED NOMED [Suspect]
     Dosage: NO TREATMENT
     Route: 048
  4. CARVEDILOL [Concomitant]
  5. PERINDOPRIL ERBUMINE [Concomitant]
  6. DIGOXIN [Concomitant]
  7. ALDACTONE [Concomitant]
  8. LASIX [Concomitant]
  9. WARFARIN SODIUM [Concomitant]

REACTIONS (4)
  - CARDIAC ARREST [None]
  - CONCOMITANT DISEASE PROGRESSION [None]
  - SYNCOPE [None]
  - VENTRICULAR FAILURE [None]
